FAERS Safety Report 10636533 (Version 1)
Quarter: 2014Q4

REPORT INFORMATION
  Report Type: Report from Study
  Country: CA (occurrence: CA)
  Receive Date: 20141207
  Receipt Date: 20141207
  Transmission Date: 20150529
  Serious: Yes (Death)
  Sender: FDA-Public Use
  Company Number: CA-AMGEN-CANSL2014094554

PATIENT
  Age: 62 Year
  Sex: Female

DRUGS (1)
  1. NEULASTA [Suspect]
     Active Substance: PEGFILGRASTIM
     Indication: NEUTROPENIA
     Dosage: 10MG/1.0 ML, UNK
     Route: 065
     Dates: start: 20130327

REACTIONS (1)
  - Death [Fatal]

NARRATIVE: CASE EVENT DATE: 20141004
